FAERS Safety Report 17150740 (Version 1)
Quarter: 2019Q4

REPORT INFORMATION
  Report Type: Spontaneous
  Country: GB (occurrence: GB)
  Receive Date: 20191213
  Receipt Date: 20191213
  Transmission Date: 20200122
  Serious: Yes (Other)
  Sender: FDA-Public Use
  Company Number: GB-TEVA-2019-GB-1150558

PATIENT
  Age: 18 Year
  Sex: Female
  Weight: 60.32 kg

DRUGS (2)
  1. LUCETTE [Concomitant]
     Active Substance: DROSPIRENONE\ETHINYL ESTRADIOL
     Route: 065
  2. CLARITHROMYCIN. [Suspect]
     Active Substance: CLARITHROMYCIN
     Indication: LOWER RESPIRATORY TRACT INFECTION
     Dosage: 500 MG
     Route: 048
     Dates: start: 20191108, end: 20191109

REACTIONS (6)
  - Palpitations [Recovered/Resolved]
  - Nausea [Recovering/Resolving]
  - Panic attack [Recovered/Resolved with Sequelae]
  - Diarrhoea [Recovering/Resolving]
  - Dysgeusia [Not Recovered/Not Resolved]
  - Tremor [Recovered/Resolved with Sequelae]
